FAERS Safety Report 6339777-7 (Version None)
Quarter: 2009Q3

REPORT INFORMATION
  Report Type: 
  Country: None (occurrence: None)
  Receive Date: 20090903
  Receipt Date: 20090825
  Transmission Date: 20100115
  Serious: Yes (Death)
  Sender: FDA-Public Use
  Company Number: US-BAXTER-2009BH013269

PATIENT
  Sex: Female

DRUGS (2)
  1. HEPARIN SODIUM INJECTION [Suspect]
     Indication: PROPHYLAXIS
     Route: 065
     Dates: start: 20070801
  2. HEPARIN SODIUM INJECTION [Suspect]
     Route: 065
     Dates: start: 20071001

REACTIONS (2)
  - ADVERSE EVENT [None]
  - DEATH [None]
